FAERS Safety Report 7931187-1 (Version None)
Quarter: 2011Q4

REPORT INFORMATION
  Report Type: 
  Country: None (occurrence: None)
  Receive Date: 20111121
  Receipt Date: 20111108
  Transmission Date: 20120403
  Serious: Yes (Hospitalization)
  Sender: FDA-Public Use
  Company Number: JP-ELI_LILLY_AND_COMPANY-JP201108007128

PATIENT
  Age: 61 Year
  Sex: Female
  Weight: 45 kg

DRUGS (15)
  1. RABEPRAZOLE SODIUM [Concomitant]
     Dosage: UNK
     Route: 048
  2. AMARYL [Concomitant]
     Indication: DIABETES MELLITUS
     Dosage: UNK
     Route: 048
  3. ZETIA [Concomitant]
     Dosage: UNK
     Route: 048
  4. TADALAFIL [Suspect]
     Indication: PULMONARY ARTERIAL HYPERTENSION
     Dosage: 40 MG, QD
     Route: 048
     Dates: start: 20110522, end: 20110523
  5. ALENDRONATE SODIUM [Concomitant]
     Dosage: 35 MG, WEEKLY (1/W)
     Route: 048
  6. BASEN [Concomitant]
     Indication: DIABETES MELLITUS
     Dosage: UNK
     Route: 048
  7. OXYGEN [Concomitant]
     Indication: INTERSTITIAL LUNG DISEASE
     Route: 055
  8. PREDNISOLONE [Concomitant]
     Indication: INTERSTITIAL LUNG DISEASE
     Dosage: 20 MG, QOD
     Route: 048
  9. NEORAL [Concomitant]
     Indication: INTERSTITIAL LUNG DISEASE
     Dosage: UNK
     Route: 048
  10. PIRFENIDONE [Concomitant]
     Indication: INTERSTITIAL LUNG DISEASE
     Dosage: UNK
     Route: 048
  11. BACTRIM [Concomitant]
     Dosage: UNK
     Route: 048
  12. METFORMIN HCL [Concomitant]
     Indication: DIABETES MELLITUS
     Dosage: UNK
     Route: 048
  13. DIOVAN [Concomitant]
     Indication: HYPERTENSION
     Dosage: UNK
     Route: 048
  14. TADALAFIL [Suspect]
     Dosage: 20 MG, QD
     Route: 048
     Dates: start: 20110524, end: 20110603
  15. PRAVASTATIN SODIUM [Concomitant]
     Dosage: UNK
     Route: 048

REACTIONS (1)
  - CARDIAC FAILURE [None]
